FAERS Safety Report 4882749-X (Version None)
Quarter: 2006Q1

REPORT INFORMATION
  Report Type: 
  Country: None (occurrence: None)
  Receive Date: 20060117
  Receipt Date: 20050304
  Transmission Date: 20060701
  Serious: Yes (Hospitalization)
  Sender: FDA-Public Use
  Company Number: US-MERCK-0503USA00988

PATIENT
  Age: 81 Year
  Sex: Male
  Weight: 91 kg

DRUGS (3)
  1. VIOXX [Suspect]
     Indication: ARTHRALGIA
     Route: 048
     Dates: start: 20020101, end: 20041001
  2. LASIX [Concomitant]
     Route: 065
  3. TIMOPTIC [Concomitant]
     Route: 001

REACTIONS (2)
  - HEART RATE IRREGULAR [None]
  - SYNCOPE [None]
